FAERS Safety Report 6999801-5 (Version None)
Quarter: 2010Q3

REPORT INFORMATION
  Report Type: 
  Country: None (occurrence: None)
  Receive Date: 20100920
  Receipt Date: 20100910
  Transmission Date: 20110219
  Serious: Yes (Hospitalization)
  Sender: FDA-Public Use
  Company Number: KR-BRISTOL-MYERS SQUIBB COMPANY-15238637

PATIENT
  Age: 61 Year
  Sex: Male
  Weight: 56 kg

DRUGS (3)
  1. CETUXIMAB [Suspect]
     Indication: GASTROOESOPHAGEAL CANCER
     Dosage: RECENT INF:09AUG2010 TOT:5
     Route: 042
     Dates: start: 20100714
  2. CISPLATIN [Suspect]
     Indication: GASTROOESOPHAGEAL CANCER
     Dosage: RECENT INF:02AUG2010, ON DAY 1 OF CYCLE. ONGOING
     Route: 042
     Dates: start: 20100714
  3. XELODA [Suspect]
     Indication: GASTROOESOPHAGEAL CANCER
     Dosage: RECENT INF:09AUG2010, ON DAY 1-15. TABLET;ONGOING
     Route: 048
     Dates: start: 20100714

REACTIONS (1)
  - DEEP VEIN THROMBOSIS [None]
